FAERS Safety Report 21368862 (Version 2)
Quarter: 2022Q4

REPORT INFORMATION
  Report Type: Spontaneous
  Country: US (occurrence: US)
  Receive Date: 20220923
  Receipt Date: 20221121
  Transmission Date: 20230113
  Serious: Yes (Death, Hospitalization, Other)
  Sender: FDA-Public Use
  Company Number: US-BRISTOL-MYERS SQUIBB COMPANY-2022-110693

PATIENT
  Age: 95 Year
  Sex: Female
  Weight: 42.9 kg

DRUGS (18)
  1. ELIQUIS [Suspect]
     Active Substance: APIXABAN
     Indication: Thrombosis prophylaxis
     Dosage: DOSE : UNAVAILABLE;     FREQ : ONE TABLET ORALLY TWICE DAILY
     Route: 048
     Dates: start: 20220701
  2. MIRALAX [Concomitant]
     Active Substance: POLYETHYLENE GLYCOL 3350
     Indication: Constipation
     Dosage: TAKE 17 G BY MOUTH DAILY AS NEEDED IN 8 OZ WATER.
     Route: 048
     Dates: start: 20220630
  3. COZAAR [Concomitant]
     Active Substance: LOSARTAN POTASSIUM
     Route: 048
     Dates: start: 20220531
  4. TYLENOL ARTHRITIS PAIN [Concomitant]
     Active Substance: ACETAMINOPHEN
     Indication: Pain
     Dosage: AS NEEDED FOR PAIN
     Route: 048
     Dates: end: 20220707
  5. VITAMIN C [Concomitant]
     Active Substance: ASCORBIC ACID
     Indication: Product used for unknown indication
     Route: 048
     Dates: start: 20181221
  6. LIPITOR [Concomitant]
     Active Substance: ATORVASTATIN CALCIUM
     Indication: Product used for unknown indication
     Route: 048
     Dates: start: 20210607
  7. CARDIZEM CD [Concomitant]
     Active Substance: DILTIAZEM HYDROCHLORIDE
     Indication: Product used for unknown indication
     Route: 048
     Dates: start: 20220531
  8. FERROUS SULFATE [Concomitant]
     Active Substance: FERROUS SULFATE
     Indication: Product used for unknown indication
     Dosage: WITH BREAKFAST
     Route: 048
     Dates: start: 20191126
  9. LASIX [Concomitant]
     Active Substance: FUROSEMIDE
     Indication: Oedema
     Dosage: TAKE 2 TABLETS BY MOUTH EVERYDAY MAY ALSO TAKE 1 TABLET EVERYDAY AS NEEDED (IN THE AFTERNOON)
     Route: 048
     Dates: start: 20220405
  10. IMDUR [Concomitant]
     Active Substance: ISOSORBIDE MONONITRATE
     Indication: Product used for unknown indication
     Route: 048
     Dates: start: 20220420
  11. IMODIUM [Concomitant]
     Active Substance: LOPERAMIDE HYDROCHLORIDE
     Indication: Diarrhoea
     Dosage: AS NEEDED.
     Route: 048
     Dates: start: 20220629
  12. CHLORTHALIDONE [Concomitant]
     Active Substance: CHLORTHALIDONE
     Indication: Product used for unknown indication
     Dosage: WITH MEALS.
     Route: 048
     Dates: start: 20191126
  13. TOPROL XL [Concomitant]
     Active Substance: METOPROLOL SUCCINATE
     Indication: Product used for unknown indication
     Route: 048
     Dates: start: 20220531
  14. PRILOSEC [Concomitant]
     Active Substance: OMEPRAZOLE MAGNESIUM
     Indication: Product used for unknown indication
     Route: 048
     Dates: start: 20220531
  15. OXYGEN [Concomitant]
     Active Substance: OXYGEN
     Indication: Visual impairment
     Dosage: INHALE 3 L/MIN INTO THE LUNGS NIGHTLY.
     Route: 055
     Dates: end: 20220707
  16. POLYVINYL ALCOHOL(ARTIFICAL TEARS) [Concomitant]
     Dosage: 1 DROP AS NEEDED
  17. RISA-BID PROBIOTIC [Concomitant]
     Dosage: WITH MEALS.
     Route: 048
     Dates: start: 20220622
  18. HYTRIN [Concomitant]
     Active Substance: TERAZOSIN HYDROCHLORIDE
     Dosage: TAKE 1 CAPSULE BY MOUTH NIGHTLY
     Route: 048
     Dates: start: 20210607

REACTIONS (8)
  - Chronic obstructive pulmonary disease [Unknown]
  - Acute respiratory failure [Fatal]
  - Small intestinal obstruction [Unknown]
  - Hypertensive heart disease [Unknown]
  - Hypertensive nephropathy [Unknown]
  - Malnutrition [Unknown]
  - Abdominal pain [Recovered/Resolved]
  - Dyspnoea [Recovered/Resolved]
